FAERS Safety Report 19332030 (Version 2)
Quarter: 2021Q2

REPORT INFORMATION
  Report Type: Spontaneous
  Country: US (occurrence: US)
  Receive Date: 20210529
  Receipt Date: 20210612
  Transmission Date: 20210717
  Serious: Yes (Other)
  Sender: FDA-Public Use
  Company Number: US-INSUD PHARMA-2105US00590

PATIENT

DRUGS (3)
  1. SLYND [Suspect]
     Active Substance: DROSPIRENONE
     Indication: MENSTRUAL DISORDER
     Dosage: UNKNOWN DOSE, USED FOR 1.5 WEEKS
     Route: 048
  2. GABAPENTIN. [Concomitant]
     Active Substance: GABAPENTIN
     Indication: INTERVERTEBRAL DISC PROTRUSION
     Dosage: 100 MG NIGHTLY
  3. LAMICTAL XR [Concomitant]
     Active Substance: LAMOTRIGINE
     Indication: SEIZURE
     Dosage: 450 MG DAILY

REACTIONS (4)
  - Therapy change [Unknown]
  - Condition aggravated [Recovered/Resolved]
  - Seizure [Recovered/Resolved]
  - Off label use [Unknown]
